FAERS Safety Report 5771626-8 (Version None)
Quarter: 2008Q2

REPORT INFORMATION
  Report Type: 
  Country: None (occurrence: None)
  Receive Date: 20080611
  Receipt Date: 20080527
  Transmission Date: 20081010
  Serious: Yes (Death, Other)
  Sender: FDA-Public Use
  Company Number: 2008000639

PATIENT
  Age: 68 Year
  Sex: Female

DRUGS (4)
  1. TARCEVA [Suspect]
     Indication: BRONCHIAL CARCINOMA
     Dosage: (150 MG, QD), ORAL
     Route: 048
     Dates: start: 20071114
  2. NEXIUM [Suspect]
     Indication: OESOPHAGITIS
     Dosage: (40 MG), ORAL
     Route: 048
     Dates: start: 20070906, end: 20080220
  3. LEXOMIL (BROMAZEPAM) [Concomitant]
  4. ACETAMINOPHEN [Concomitant]

REACTIONS (3)
  - DISEASE PROGRESSION [None]
  - GAMMA-GLUTAMYLTRANSFERASE INCREASED [None]
  - OEDEMATOUS PANCREATITIS [None]
